FAERS Safety Report 9403737 (Version 1)
Quarter: 2013Q3

REPORT INFORMATION
  Report Type: Spontaneous
  Country: US (occurrence: None)
  Receive Date: 20130715
  Receipt Date: 20130715
  Transmission Date: 20140515
  Serious: Yes (Hospitalization)
  Sender: FDA-Public Use
  Company Number: None

PATIENT
  Age: 27 Year
  Sex: Male
  Weight: 73.12 kg

DRUGS (1)
  1. TEMOZOLOMIDE [Suspect]
     Dates: end: 20130603

REACTIONS (2)
  - Central nervous system necrosis [None]
  - Cyst [None]
